FAERS Safety Report 18769378 (Version 2)
Quarter: 2021Q1

REPORT INFORMATION
  Report Type: Spontaneous
  Country: US (occurrence: US)
  Receive Date: 20210121
  Receipt Date: 20210211
  Transmission Date: 20210419
  Serious: No
  Sender: FDA-Public Use
  Company Number: US-PFIZER INC-2021039976

PATIENT
  Age: 62 Year
  Sex: Female
  Weight: 63.49 kg

DRUGS (7)
  1. IBRANCE [Suspect]
     Active Substance: PALBOCICLIB
     Dosage: 100 MG, CYCLIC (21 DAYS ON, 7 DAYS OFF)
     Route: 048
     Dates: start: 20201210, end: 202101
  2. PROBIOTICS [Concomitant]
     Active Substance: PROBIOTICS NOS
     Dosage: UNK
  3. IBRANCE [Suspect]
     Active Substance: PALBOCICLIB
     Indication: BREAST CANCER FEMALE
     Dosage: 125 MG
     Route: 048
  4. IBRANCE [Suspect]
     Active Substance: PALBOCICLIB
     Indication: HORMONE RECEPTOR POSITIVE BREAST CANCER
     Dosage: 100 MG, DAILY
     Route: 048
  5. VITAMIN D3 [Concomitant]
     Active Substance: CHOLECALCIFEROL
     Dosage: UNK
  6. ZOMETA [Concomitant]
     Active Substance: ZOLEDRONIC ACID
     Dosage: UNK
  7. MIRALAX [Concomitant]
     Active Substance: POLYETHYLENE GLYCOL 3350
     Dosage: UNK

REACTIONS (3)
  - White blood cell count decreased [Unknown]
  - Alopecia [Unknown]
  - Platelet count decreased [Unknown]
